FAERS Safety Report 9064751 (Version 1)
Quarter: 2013Q1

REPORT INFORMATION
  Report Type: Spontaneous
  Country: US (occurrence: US)
  Receive Date: 20130130
  Receipt Date: 20130130
  Transmission Date: 20140127
  Serious: No
  Sender: FDA-Public Use
  Company Number: US-ASTRAZENECA-2013SE05894

PATIENT
  Age: 67 Year
  Sex: Female
  Weight: 95.3 kg

DRUGS (1)
  1. NEXIUM [Suspect]
     Indication: GASTRIC DISORDER
     Route: 048

REACTIONS (3)
  - Abdominal pain upper [Unknown]
  - Drug dose omission [Unknown]
  - Off label use [Unknown]
